FAERS Safety Report 9958343 (Version 2)
Quarter: 2014Q2

REPORT INFORMATION
  Report Type: Spontaneous
  Country: US (occurrence: US)
  Receive Date: 20140305
  Receipt Date: 20140404
  Transmission Date: 20141212
  Serious: Yes (Death, Life-Threatening)
  Sender: FDA-Public Use
  Company Number: US-ROCHE-1359618

PATIENT
  Age: 44 Year
  Sex: Female
  Weight: 68.1 kg

DRUGS (3)
  1. AVASTIN [Suspect]
     Indication: LUNG NEOPLASM MALIGNANT
     Dosage: 15 MG/IC
     Route: 042
     Dates: start: 20131202, end: 20140210
  2. TAXOL [Concomitant]
     Indication: LUNG NEOPLASM MALIGNANT
     Dosage: AVE 6
     Route: 042
     Dates: start: 20131202, end: 20140210
  3. CARBOPLATIN [Concomitant]
     Indication: LUNG NEOPLASM MALIGNANT
     Dosage: AUC 6
     Route: 065
     Dates: start: 20131202, end: 20131210

REACTIONS (2)
  - Disease progression [Fatal]
  - Gastrointestinal perforation [Unknown]
